FAERS Safety Report 8244664-3 (Version None)
Quarter: 2012Q1

REPORT INFORMATION
  Report Type: 
  Country: None (occurrence: None)
  Receive Date: 20120329
  Receipt Date: 20120215
  Transmission Date: 20120608
  Serious: No
  Sender: FDA-Public Use
  Company Number: US-MYLANLABS-2011S1026443

PATIENT
  Age: 51 Year
  Sex: Female

DRUGS (5)
  1. FENTANYL-100 [Suspect]
     Indication: ARTHRALGIA
     Dosage: CHANGED Q72H
     Route: 062
     Dates: end: 20120103
  2. OXYCODONE HCL [Suspect]
     Indication: PAIN
     Route: 048
     Dates: end: 20120101
  3. TYLENOL [Concomitant]
  4. FENTANYL-100 [Suspect]
     Indication: MYALGIA
     Dosage: CHANGED Q72H
     Route: 062
     Dates: end: 20120103
  5. CLONAZEPAM [Suspect]
     Indication: INSOMNIA
     Route: 048

REACTIONS (4)
  - INSOMNIA [None]
  - SNEEZING [None]
  - FALSE NEGATIVE INVESTIGATION RESULT [None]
  - DRUG WITHDRAWAL SYNDROME [None]
